FAERS Safety Report 14393731 (Version 1)
Quarter: 2018Q1

REPORT INFORMATION
  Report Type: Spontaneous
  Country: US (occurrence: US)
  Receive Date: 20180115
  Receipt Date: 20180115
  Transmission Date: 20180509
  Serious: No
  Sender: FDA-Public Use
  Company Number: None

PATIENT
  Age: 35 Year
  Sex: Male
  Weight: 90 kg

DRUGS (1)
  1. VIGAMOX [Suspect]
     Active Substance: MOXIFLOXACIN HYDROCHLORIDE
     Route: 047
     Dates: start: 20180110, end: 20180112

REACTIONS (5)
  - Pharyngeal oedema [None]
  - Cough [None]
  - Product taste abnormal [None]
  - Dysphagia [None]
  - Oropharyngeal pain [None]

NARRATIVE: CASE EVENT DATE: 20180114
